FAERS Safety Report 25962786 (Version 1)
Quarter: 2025Q4

REPORT INFORMATION
  Report Type: Spontaneous
  Country: US (occurrence: US)
  Receive Date: 20251027
  Receipt Date: 20251027
  Transmission Date: 20260118
  Serious: No
  Sender: SUNOVION
  Company Number: US-SUMITOMO PHARMA SWITZERLAND GMBH-2025SPA012916

PATIENT
  Age: 34 Year
  Sex: Female

DRUGS (2)
  1. MYFEMBREE [Suspect]
     Active Substance: ESTRADIOL HEMIHYDRATE\NORETHINDRONE ACETATE\RELUGOLIX
     Indication: Endometriosis
     Dosage: UNK
     Route: 048
  2. SEA MOSS DIETARY SUPPLEMENT [Suspect]
     Active Substance: ARCTIUM LAPPA ROOT\ASCORBIC ACID\CHOLECALCIFEROL\CHONDRUS CRISPUS\CURCUMA LONGA WHOLE\FUCUS VESICULO
     Indication: Product used for unknown indication
     Dosage: UNK

REACTIONS (1)
  - Cardiac flutter [Recovered/Resolved]
